FAERS Safety Report 4579501-1 (Version None)
Quarter: 2005Q1

REPORT INFORMATION
  Report Type: 
  Country: None (occurrence: None)
  Receive Date: 20050209
  Receipt Date: 20050125
  Transmission Date: 20050727
  Serious: Yes (Death)
  Sender: FDA-Public Use
  Company Number: 0244BAR

PATIENT
  Age: 78 Year
  Sex: Male

DRUGS (1)
  1. COLGATE TOTAL [Suspect]
     Indication: DENTAL DISORDER PROPHYLAXIS
     Dosage: 2X DAY ORAL
     Route: 048
     Dates: start: 20030616, end: 20030912

REACTIONS (1)
  - CARDIAC FAILURE [None]
